FAERS Safety Report 9586623 (Version 1)
Quarter: 2013Q4

REPORT INFORMATION
  Report Type: Spontaneous
  Country: US (occurrence: US)
  Receive Date: 20131003
  Receipt Date: 20131003
  Transmission Date: 20140711
  Serious: No
  Sender: FDA-Public Use
  Company Number: US-BAYER-2013-118917

PATIENT
  Age: 65 Year
  Sex: Female
  Weight: 52.15 kg

DRUGS (2)
  1. ALEVE TABLET [Suspect]
     Indication: PAIN IN JAW
     Dosage: 2 DF, BID
     Route: 048
     Dates: start: 20130910
  2. MONOPRIL [Concomitant]

REACTIONS (1)
  - Incorrect drug administration duration [None]
